FAERS Safety Report 9457454 (Version 1)
Quarter: 2013Q3

REPORT INFORMATION
  Report Type: Spontaneous
  Country: GB (occurrence: None)
  Receive Date: 20130812
  Receipt Date: 20130812
  Transmission Date: 20140515
  Serious: Yes (Other)
  Sender: FDA-Public Use
  Company Number: SYM-2013-07715

PATIENT
  Age: 31 Year
  Sex: Female

DRUGS (4)
  1. METRONIDAZOLE [Suspect]
     Indication: PELVIC INFLAMMATORY DISEASE
     Route: 048
     Dates: start: 20130628, end: 20130707
  2. DOXYCYCLINE (DOXYCYCLINE) (DOXYCYCLINE) [Concomitant]
  3. CANESTEN (CLOTRIMAZOLE) (CLOTRIMAZOLE) [Concomitant]
  4. ORAL CONTRACEPTIVE NOS (ORAL CONTRACEPTIVE NOS) [Concomitant]

REACTIONS (1)
  - Neuropathy peripheral [None]
